FAERS Safety Report 8491673-5 (Version None)
Quarter: 2012Q3

REPORT INFORMATION
  Report Type: 
  Country: None (occurrence: None)
  Receive Date: 20120706
  Receipt Date: 20120624
  Transmission Date: 20120928
  Serious: Yes (Other)
  Sender: FDA-Public Use
  Company Number: JP-BRISTOL-MYERS SQUIBB COMPANY-16737686

PATIENT
  Age: 38 Year
  Sex: Male

DRUGS (1)
  1. BLEOMYCIN SULFATE [Suspect]

REACTIONS (1)
  - SCLERODERMA [None]
